FAERS Safety Report 14226033 (Version 2)
Quarter: 2018Q1

REPORT INFORMATION
  Report Type: Spontaneous
  Country: FR (occurrence: FR)
  Receive Date: 20171127
  Receipt Date: 20180103
  Transmission Date: 20180508
  Serious: Yes (Hospitalization)
  Sender: FDA-Public Use
  Company Number: FR-ACTELION-A-CH2017-156591

PATIENT
  Age: 60 Year
  Sex: Female

DRUGS (7)
  1. TRACLEER [Concomitant]
     Active Substance: BOSENTAN
     Dosage: UNK
     Route: 048
  2. METHOTREXATE. [Concomitant]
     Active Substance: METHOTREXATE
     Dosage: UNK
  3. ADCIRCA [Concomitant]
     Active Substance: TADALAFIL
     Dosage: UNK
  4. VELETRI [Suspect]
     Active Substance: EPOPROSTENOL
     Indication: PULMONARY ARTERIAL HYPERTENSION
     Dosage: UNK
     Route: 042
     Dates: start: 20160519
  5. SPECIAFOLDINE [Concomitant]
     Active Substance: FOLIC ACID
     Dosage: UNK
  6. LYRICA [Concomitant]
     Active Substance: PREGABALIN
  7. IMOVANE [Concomitant]
     Active Substance: ZOPICLONE
     Dosage: UNK

REACTIONS (15)
  - Device related sepsis [Recovered/Resolved]
  - Staphylococcus test positive [Recovered/Resolved]
  - Purulent discharge [Recovered/Resolved]
  - Chills [Recovered/Resolved]
  - Pyrexia [Recovered/Resolved]
  - Catheter site induration [Recovered/Resolved]
  - Catheter culture positive [Recovered/Resolved]
  - Staphylococcal infection [Recovered/Resolved]
  - Device related infection [Recovered/Resolved]
  - Localised infection [Recovered/Resolved]
  - Catheter management [Unknown]
  - C-reactive protein increased [Recovered/Resolved]
  - Catheter site pain [Recovered/Resolved]
  - Catheter site inflammation [Recovered/Resolved]
  - Blood culture positive [Recovered/Resolved]

NARRATIVE: CASE EVENT DATE: 20170628
